FAERS Safety Report 8137790-0 (Version None)
Quarter: 2012Q1

REPORT INFORMATION
  Report Type: 
  Country: None (occurrence: None)
  Receive Date: 20120215
  Receipt Date: 20120213
  Transmission Date: 20120608
  Serious: Yes (Other)
  Sender: FDA-Public Use
  Company Number: US-AMGEN-USASP2012005099

PATIENT
  Age: 18 Year
  Sex: Female
  Weight: 66 kg

DRUGS (12)
  1. FOLIC ACID [Concomitant]
     Dosage: UNK
     Dates: start: 20110302
  2. OMEPRAZOLE [Concomitant]
     Dosage: UNK
     Dates: start: 20111026
  3. ENBREL [Suspect]
     Dosage: 25 MG, QWK
     Dates: start: 20110720, end: 20110901
  4. METHOTREXATE [Concomitant]
     Dosage: UNK
     Dates: start: 20110302
  5. TRAMADOL HCL [Concomitant]
     Dosage: UNK
     Dates: start: 20100707
  6. METOCLOPRAMIDE [Concomitant]
     Dosage: UNK
  7. ENBREL [Suspect]
     Indication: RHEUMATOID ARTHRITIS
     Dosage: 50 MG, QWK
     Route: 058
     Dates: start: 20110722, end: 20110812
  8. RECLIPSEN [Concomitant]
     Dosage: UNK
  9. VOLTAREN [Concomitant]
     Dosage: UNK
     Dates: start: 20110119
  10. GABAPENTIN [Concomitant]
     Dosage: UNK
  11. SAVELLA [Concomitant]
     Dosage: UNK
  12. HYDROCODONE W/APAP                 /00607101/ [Concomitant]
     Dosage: UNK

REACTIONS (5)
  - HYPERTENSION [None]
  - FATIGUE [None]
  - RASH [None]
  - FLUSHING [None]
  - LUPUS-LIKE SYNDROME [None]
